FAERS Safety Report 20675352 (Version 1)
Quarter: 2022Q2

REPORT INFORMATION
  Report Type: Report from Study
  Country: US (occurrence: US)
  Receive Date: 20220405
  Receipt Date: 20220405
  Transmission Date: 20220721
  Serious: No
  Sender: FDA-Public Use
  Company Number: US-BEH-2022143539

PATIENT
  Age: 78 Year
  Sex: Female
  Weight: 64.399 kg

DRUGS (2)
  1. HIZENTRA [Suspect]
     Active Substance: HUMAN IMMUNOGLOBULIN G
     Indication: Chronic inflammatory demyelinating polyradiculoneuropathy
     Dosage: 24 GRAM
     Route: 065
     Dates: start: 202002
  2. CORTISONE [Suspect]
     Active Substance: CORTISONE

REACTIONS (3)
  - Weight increased [Recovering/Resolving]
  - Localised oedema [Recovering/Resolving]
  - Chest discomfort [Recovering/Resolving]
